FAERS Safety Report 8799995 (Version 3)
Quarter: 2012Q4

REPORT INFORMATION
  Report Type: Report from Study
  Country: DE (occurrence: DE)
  Receive Date: 20120921
  Receipt Date: 20121211
  Transmission Date: 20130627
  Serious: Yes (Hospitalization, Other)
  Sender: FDA-Public Use
  Company Number: DE-BAXTER-2012BAX017249

PATIENT
  Age: 73 Year
  Sex: Female
  Weight: 70 kg

DRUGS (9)
  1. ENDOXAN [Suspect]
     Indication: MALIGNANT BREAST NEOPLASM
     Route: 042
     Dates: start: 20120717, end: 20120807
  2. ENDOXAN [Suspect]
     Route: 042
     Dates: start: 20120821
  3. EPIRUBICIN [Suspect]
     Indication: MALIGNANT BREAST NEOPLASM
     Route: 042
     Dates: start: 20120717, end: 20120807
  4. EPIRUBICIN [Suspect]
     Route: 042
     Dates: start: 20120821
  5. TRASTUZUMAB [Suspect]
     Indication: DRUG USE FOR UNKNOWN INDICATION
     Route: 065
     Dates: start: 20121030, end: 20121030
  6. PACLITAXEL [Suspect]
     Indication: DRUG USE FOR UNKNOWN INDICATION
     Route: 065
     Dates: start: 20121030, end: 20121030
  7. BISOPROLOL [Concomitant]
     Indication: DRUG USE FOR UNKNOWN INDICATION
     Route: 065
  8. LEVOTHYROXINE [Concomitant]
     Indication: DRUG USE FOR UNKNOWN INDICATION
     Route: 065
     Dates: start: 20120724
  9. HCT [Concomitant]
     Indication: DRUG USE FOR UNKNOWN INDICATION
     Route: 065

REACTIONS (3)
  - Arrhythmia [Recovered/Resolved]
  - None [Recovered/Resolved]
  - Anaemia [Recovered/Resolved]
